FAERS Safety Report 4686963-8 (Version None)
Quarter: 2005Q2

REPORT INFORMATION
  Report Type: 
  Country: None (occurrence: None)
  Receive Date: 20050608
  Receipt Date: 20050524
  Transmission Date: 20051028
  Serious: Yes (Congenital Anomaly)
  Sender: FDA-Public Use
  Company Number: B0383214A

PATIENT
  Sex: Male

DRUGS (4)
  1. LANOXIN [Suspect]
     Dosage: PER DAY / TRANSPLACENTARY
     Route: 064
  2. STEROID (FORMULATION UNKNOWN) (STEROID) [Suspect]
     Dosage: TRANSPLACENTARY
     Route: 064
  3. MAGNESIUM SULFATE [Suspect]
     Dosage: TRANSPLACENTARY
     Route: 064
  4. INDOMETHACIN (FORMULATION UNKNOWN) (INDOMETHACIN) [Concomitant]
     Dosage: TRANSPLACENTARY
     Route: 064

REACTIONS (20)
  - ANAL ATRESIA [None]
  - ASCITES [None]
  - ATRIAL SEPTAL DEFECT [None]
  - BREECH PRESENTATION [None]
  - BRONCHOSTENOSIS [None]
  - CAESAREAN SECTION [None]
  - DRUG EXPOSURE DURING PREGNANCY [None]
  - FOETAL DISORDER [None]
  - HYDROPS FOETALIS [None]
  - LUNG CONSOLIDATION [None]
  - NEONATAL RESPIRATORY DISTRESS SYNDROME [None]
  - NOSOCOMIAL INFECTION [None]
  - PATENT DUCTUS ARTERIOSUS [None]
  - PLACENTAL DISORDER [None]
  - PLEURAL EFFUSION [None]
  - PLEURAL FIBROSIS [None]
  - PNEUMONIA [None]
  - PULMONARY HYPOPLASIA [None]
  - TACHYCARDIA FOETAL [None]
  - TRICUSPID VALVE INCOMPETENCE [None]
